FAERS Safety Report 17296973 (Version 1)
Quarter: 2020Q1

REPORT INFORMATION
  Report Type: Spontaneous
  Country: US (occurrence: US)
  Receive Date: 20200122
  Receipt Date: 20200122
  Transmission Date: 20200409
  Serious: Yes (Other)
  Sender: FDA-Public Use
  Company Number: US-CIPLA LTD.-2020US00348

PATIENT

DRUGS (10)
  1. CYCLOPHOSPHAMIDE. [Suspect]
     Active Substance: CYCLOPHOSPHAMIDE
     Indication: EWING^S SARCOMA
  2. DOXORUBICIN [Suspect]
     Active Substance: DOXORUBICIN
     Indication: EWING^S SARCOMA
     Dosage: UNK, CYCLICAL, (14 CYCLES)
     Route: 065
  3. ETOPOSIDE. [Suspect]
     Active Substance: ETOPOSIDE
     Indication: EWING^S SARCOMA
  4. VINCRISTINE [Suspect]
     Active Substance: VINCRISTINE
     Indication: EWING^S SARCOMA
     Dosage: UNK, CYCLICAL, (14 CYCLES)
     Route: 065
  5. ETOPOSIDE. [Suspect]
     Active Substance: ETOPOSIDE
     Indication: SOFT TISSUE SARCOMA
     Dosage: UNK, CYCLICAL, (14 CYCLES)
     Route: 065
  6. IFOSFAMIDE. [Suspect]
     Active Substance: IFOSFAMIDE
     Indication: SOFT TISSUE SARCOMA
     Dosage: UNK, CYCLICAL, (14 CYCLES)
     Route: 065
  7. IFOSFAMIDE. [Suspect]
     Active Substance: IFOSFAMIDE
     Indication: EWING^S SARCOMA
  8. DOXORUBICIN [Suspect]
     Active Substance: DOXORUBICIN
     Indication: SOFT TISSUE SARCOMA
  9. CYCLOPHOSPHAMIDE. [Suspect]
     Active Substance: CYCLOPHOSPHAMIDE
     Indication: SOFT TISSUE SARCOMA
     Dosage: UNK, CYCIICAL (14 CYCLES)
     Route: 065
  10. VINCRISTINE [Suspect]
     Active Substance: VINCRISTINE
     Indication: SOFT TISSUE SARCOMA

REACTIONS (1)
  - Transdifferentiation of neoplasm [Recovered/Resolved]
